FAERS Safety Report 12442663 (Version 1)
Quarter: 2016Q2

REPORT INFORMATION
  Report Type: Spontaneous
  Country: FR (occurrence: FR)
  Receive Date: 20160607
  Receipt Date: 20160607
  Transmission Date: 20160815
  Serious: Yes (Death, Other)
  Sender: FDA-Public Use
  Company Number: FR-MALLINCKRODT-T201602249

PATIENT
  Age: 52 Year
  Sex: Male

DRUGS (6)
  1. LEVOFLOXACIN. [Suspect]
     Active Substance: LEVOFLOXACIN
     Indication: LUNG DISORDER
     Dosage: 500 MG, BID
     Route: 048
     Dates: start: 20160310, end: 20160316
  2. OFIRMEV [Suspect]
     Active Substance: ACETAMINOPHEN
     Indication: HYPERTHERMIA
     Dosage: 1 G,  TID FOR 4 DAYS
     Route: 042
     Dates: start: 20160311, end: 20160314
  3. AUGMENTIN [Suspect]
     Active Substance: AMOXICILLIN\CLAVULANATE POTASSIUM
     Indication: LUNG DISORDER
     Dosage: 3 DF, QD, 3 SACHETS
     Route: 048
     Dates: start: 20160312, end: 20160314
  4. PROFENID [Suspect]
     Active Substance: KETOPROFEN
     Indication: PRODUCT USED FOR UNKNOWN INDICATION
     Dosage: 100 MG, TID
     Route: 048
     Dates: start: 20160311
  5. LEVOFLOXACIN. [Suspect]
     Active Substance: LEVOFLOXACIN
     Dosage: 500 MG, QD
     Route: 048
     Dates: start: 20160317
  6. AMOXICILLIN. [Suspect]
     Active Substance: AMOXICILLIN
     Indication: LUNG DISORDER
     Dosage: 1 G, TID FOR 4 DAYS
     Route: 048
     Dates: start: 20160307, end: 20160310

REACTIONS (3)
  - Cell death [Unknown]
  - Cholestasis [Unknown]
  - Death [Fatal]

NARRATIVE: CASE EVENT DATE: 20160310
